FAERS Safety Report 19258741 (Version 1)
Quarter: 2021Q2

REPORT INFORMATION
  Report Type: Spontaneous
  Country: US (occurrence: US)
  Receive Date: 20210514
  Receipt Date: 20210514
  Transmission Date: 20210717
  Serious: No
  Sender: FDA-Public Use
  Company Number: US-TAKEDA-2021TUS029344

PATIENT
  Sex: Female
  Weight: 59 kg

DRUGS (6)
  1. HYDROXYZINE [Concomitant]
     Active Substance: HYDROXYZINE HYDROCHLORIDE
  2. DULOXETINE. [Concomitant]
     Active Substance: DULOXETINE
  3. VYVANSE [Suspect]
     Active Substance: LISDEXAMFETAMINE DIMESYLATE
     Indication: ATTENTION DEFICIT HYPERACTIVITY DISORDER
     Dosage: UNK
     Route: 065
     Dates: start: 2017
  4. GUANFACINE. [Concomitant]
     Active Substance: GUANFACINE
  5. ADDERALL XR [Suspect]
     Active Substance: AMPHETAMINE ASPARTATE\AMPHETAMINE SULFATE\DEXTROAMPHETAMINE SACCHARATE\DEXTROAMPHETAMINE SULFATE
     Indication: ATTENTION DEFICIT HYPERACTIVITY DISORDER
     Dosage: UNK
     Route: 065
     Dates: start: 2017
  6. MYDAYIS [Concomitant]
     Active Substance: AMPHETAMINE ASPARTATE\AMPHETAMINE SULFATE\DEXTROAMPHETAMINE SACCHARATE\DEXTROAMPHETAMINE SULFATE
     Indication: ATTENTION DEFICIT HYPERACTIVITY DISORDER
     Dosage: UNK
     Dates: start: 2018

REACTIONS (2)
  - Illness [Recovered/Resolved]
  - Drug ineffective [Recovered/Resolved]
